FAERS Safety Report 25665647 (Version 1)
Quarter: 2025Q3

REPORT INFORMATION
  Report Type: Spontaneous
  Country: AR (occurrence: AR)
  Receive Date: 20250811
  Receipt Date: 20250811
  Transmission Date: 20251020
  Serious: Yes (Life-Threatening)
  Sender: BIOMARIN
  Company Number: AR-BIOMARINAP-AR-2025-167952

PATIENT
  Age: 19 Year
  Sex: Female
  Weight: 27.3 kg

DRUGS (1)
  1. VIMIZIM [Suspect]
     Active Substance: ELOSULFASE ALFA
     Indication: Mucopolysaccharidosis IV
     Dosage: UNK, QW
     Dates: start: 20150101

REACTIONS (1)
  - Sleep apnoea syndrome [Not Recovered/Not Resolved]
